FAERS Safety Report 6912945-9 (Version None)
Quarter: 2010Q3

REPORT INFORMATION
  Report Type: 
  Country: None (occurrence: None)
  Receive Date: 20100806
  Receipt Date: 20090409
  Transmission Date: 20110219
  Serious: Yes (Other)
  Sender: FDA-Public Use
  Company Number: US-PFIZER INC-2009174138

PATIENT
  Sex: Male

DRUGS (2)
  1. DILANTIN-125 [Suspect]
     Indication: CONVULSION
     Dosage: 100 MG, 3X/DAY
     Dates: start: 20090121
  2. DECONGESTANT [Suspect]
     Indication: ILL-DEFINED DISORDER
     Dosage: UNK
     Dates: start: 20090101

REACTIONS (5)
  - CONVULSION [None]
  - DIZZINESS [None]
  - HEART RATE INCREASED [None]
  - NEUROPATHY PERIPHERAL [None]
  - RESPIRATORY TRACT CONGESTION [None]
